FAERS Safety Report 15150114 (Version 1)
Quarter: 2018Q3

REPORT INFORMATION
  Report Type: Spontaneous
  Country: US (occurrence: US)
  Receive Date: 20180716
  Receipt Date: 20180716
  Transmission Date: 20181010
  Serious: No
  Sender: FDA-Public Use
  Company Number: US-BAYER-2018-130413

PATIENT
  Age: 87 Year
  Sex: Female
  Weight: 73 kg

DRUGS (1)
  1. ALEVE [Suspect]
     Active Substance: NAPROXEN SODIUM
     Indication: PAIN
     Dosage: 2 TABLETS TWICE A DAY
     Route: 048
     Dates: start: 201806

REACTIONS (6)
  - Incorrect dosage administered [Unknown]
  - Product use issue [Unknown]
  - Off label use [Unknown]
  - Insomnia [Unknown]
  - Abnormal dreams [Unknown]
  - Product prescribing issue [Unknown]

NARRATIVE: CASE EVENT DATE: 201806
